FAERS Safety Report 6432347-1 (Version None)
Quarter: 2009Q4

REPORT INFORMATION
  Report Type: 
  Country: None (occurrence: None)
  Receive Date: 20091109
  Receipt Date: 20091009
  Transmission Date: 20100525
  Serious: No
  Sender: FDA-Public Use
  Company Number: US-BAYER-200931276NA

PATIENT
  Age: 25 Year
  Sex: Female
  Weight: 73 kg

DRUGS (2)
  1. MIRENA [Suspect]
     Indication: CONTRACEPTION
     Dosage: CONTINUOUS
     Route: 015
     Dates: start: 20081022, end: 20090827
  2. THYROID TAB [Concomitant]

REACTIONS (3)
  - MUSCLE SPASMS [None]
  - MUSCLE TWITCHING [None]
  - TREMOR [None]
